FAERS Safety Report 11557876 (Version 1)
Quarter: 2015Q3

REPORT INFORMATION
  Report Type: Spontaneous
  Country: US (occurrence: None)
  Receive Date: 20150924
  Receipt Date: 20150924
  Transmission Date: 20151125
  Serious: Yes (Other)
  Sender: FDA-Public Use
  Company Number: RAP-001103-2015

PATIENT
  Age: 31 Year
  Sex: Female
  Weight: 52.2 kg

DRUGS (1)
  1. PROCYSBI DELAYED-RELEASE [Suspect]
     Active Substance: CYSTEAMINE BITARTRATE
     Indication: CYSTINOSIS
     Route: 048
     Dates: start: 201506

REACTIONS (1)
  - Dyspnoea at rest [None]

NARRATIVE: CASE EVENT DATE: 20150826
